FAERS Safety Report 18381003 (Version 3)
Quarter: 2020Q4

REPORT INFORMATION
  Report Type: Spontaneous
  Country: JP (occurrence: JP)
  Receive Date: 20201014
  Receipt Date: 20201105
  Transmission Date: 20210114
  Serious: Yes (Other)
  Sender: FDA-Public Use
  Company Number: JP-GLAXOSMITHKLINE-JP2020201907

PATIENT
  Age: 56 Year
  Sex: Male

DRUGS (2)
  1. ALLERMIST [Suspect]
     Active Substance: FLUTICASONE FUROATE
     Indication: NASAL CONGESTION
     Dosage: 110 UG, QD
     Route: 045
     Dates: start: 201909
  2. ALLERMIST [Suspect]
     Active Substance: FLUTICASONE FUROATE
     Indication: RHINITIS ALLERGIC

REACTIONS (1)
  - Gastrointestinal candidiasis [Unknown]

NARRATIVE: CASE EVENT DATE: 202009
